FAERS Safety Report 21205358 (Version 3)
Quarter: 2022Q4

REPORT INFORMATION
  Report Type: Spontaneous
  Country: US (occurrence: US)
  Receive Date: 20220812
  Receipt Date: 20221124
  Transmission Date: 20230112
  Serious: No
  Sender: FDA-Public Use
  Company Number: US-BRISTOL-MYERS SQUIBB COMPANY-2022-089448

PATIENT
  Age: 35 Year
  Sex: Male
  Weight: 106.59 kg

DRUGS (7)
  1. SPRYCEL [Suspect]
     Active Substance: DASATINIB
     Indication: Leukaemia
     Route: 048
     Dates: start: 202208
  2. SPRYCEL [Suspect]
     Active Substance: DASATINIB
     Indication: Chronic myeloid leukaemia
     Route: 065
  3. SPRYCEL [Suspect]
     Active Substance: DASATINIB
     Dosage: DOSE : 100 MG;     FREQ : QD
     Route: 048
     Dates: start: 202211
  4. SPRYCEL [Suspect]
     Active Substance: DASATINIB
     Dosage: DOSE : 100 MG;     FREQ : QD
     Route: 048
     Dates: start: 20220810
  5. OMEPRAZOLE [Concomitant]
     Active Substance: OMEPRAZOLE
     Indication: Product used for unknown indication
     Route: 065
  6. NORVASC V [Concomitant]
     Indication: Product used for unknown indication
     Route: 065
  7. LISINOPRIL [Concomitant]
     Active Substance: LISINOPRIL
     Indication: Product used for unknown indication
     Route: 065

REACTIONS (4)
  - Vomiting [Unknown]
  - Nausea [Unknown]
  - Headache [Unknown]
  - Fatigue [Unknown]
